FAERS Safety Report 13900595 (Version 1)
Quarter: 2017Q3

REPORT INFORMATION
  Report Type: Report from Study
  Country: US (occurrence: US)
  Receive Date: 20170824
  Receipt Date: 20170824
  Transmission Date: 20171127
  Serious: Yes (Hospitalization, Other)
  Sender: FDA-Public Use
  Company Number: US-BAYER-2017-104357

PATIENT
  Age: 56 Year
  Sex: Male

DRUGS (5)
  1. LOSARTAN POTASSIUM. [Concomitant]
     Active Substance: LOSARTAN POTASSIUM
  2. TOPROL XL [Concomitant]
     Active Substance: METOPROLOL SUCCINATE
  3. NEXAVAR [Suspect]
     Active Substance: SORAFENIB
     Indication: HEPATOCELLULAR CARCINOMA
     Dosage: 200 MG, BID
     Route: 048
     Dates: start: 20170210
  4. SPIRONOLACTONE. [Concomitant]
     Active Substance: SPIRONOLACTONE
  5. BUMETANIDE. [Concomitant]
     Active Substance: BUMETANIDE

REACTIONS (3)
  - Cholelithiasis [None]
  - Renal disorder [None]
  - Hospitalisation [None]

NARRATIVE: CASE EVENT DATE: 201708
